FAERS Safety Report 7615828-4 (Version None)
Quarter: 2011Q3

REPORT INFORMATION
  Report Type: 
  Country: None (occurrence: None)
  Receive Date: 20110718
  Receipt Date: 20110718
  Transmission Date: 20111222
  Serious: Yes (Death)
  Sender: FDA-Public Use
  Company Number: None

PATIENT
  Age: 49 Year
  Sex: Male
  Weight: 71.2147 kg

DRUGS (16)
  1. LAMOTRIGINE [Concomitant]
  2. CLONAZEPAM [Concomitant]
  3. TRIMETHOPRIM + SULFAMETHOXAZOLE [Concomitant]
  4. MESALAMINE [Suspect]
     Dosage: 4 TABLETS DAILY BY MOUTH
     Route: 048
     Dates: start: 20110512, end: 20110630
  5. EPZICOM [Suspect]
     Indication: RENAL FAILURE
     Dosage: 1 TABLET DAILY BY MOUTH
     Route: 048
     Dates: start: 20110516, end: 20110630
  6. EPZICOM [Suspect]
     Indication: HIV INFECTION
     Dosage: 1 TABLET DAILY BY MOUTH
     Route: 048
     Dates: start: 20110516, end: 20110630
  7. PSEUDOEPHEDRINE HCL [Concomitant]
  8. FAMCICLOVIR [Concomitant]
  9. FLUOXETINE [Concomitant]
  10. ATAZANAVIR [Concomitant]
  11. EPZICOM [Concomitant]
  12. RITONAVIR [Concomitant]
  13. OXYCODONE HCL [Concomitant]
  14. LORATADINE [Concomitant]
  15. QUETIAPINE [Concomitant]
  16. TESTOSTERONE CYPIONATE [Concomitant]

REACTIONS (1)
  - SUDDEN CARDIAC DEATH [None]
